FAERS Safety Report 25002075 (Version 1)
Quarter: 2025Q1

REPORT INFORMATION
  Report Type: Spontaneous
  Country: US (occurrence: US)
  Receive Date: 20250224
  Receipt Date: 20250224
  Transmission Date: 20250408
  Serious: No
  Sender: ELI LILLY AND COMPANY
  Company Number: US-ELI_LILLY_AND_COMPANY-US202502016827

PATIENT

DRUGS (1)
  1. MIRIKIZUMAB [Suspect]
     Active Substance: MIRIKIZUMAB
     Indication: Product used for unknown indication
     Route: 065

REACTIONS (1)
  - Asthma [Recovered/Resolved]
